FAERS Safety Report 7067455-8 (Version None)
Quarter: 2010Q4

REPORT INFORMATION
  Report Type: 
  Country: None (occurrence: None)
  Receive Date: 20101026
  Receipt Date: 20101026
  Transmission Date: 20110411
  Serious: Yes (Hospitalization)
  Sender: FDA-Public Use
  Company Number: None

PATIENT
  Age: 57 Year
  Sex: Male
  Weight: 74.6 kg

DRUGS (1)
  1. SULFAMETHOXAZOLE AND TRIMETHOPRIM [Suspect]
     Indication: SKIN INFECTION
     Dosage: 800/160 MG BID
     Dates: start: 20100817, end: 20100817

REACTIONS (7)
  - ANGINA PECTORIS [None]
  - ASTHENIA [None]
  - BODY TEMPERATURE INCREASED [None]
  - HYPOAESTHESIA [None]
  - HYPOTENSION [None]
  - RASH [None]
  - SKIN IRRITATION [None]
